FAERS Safety Report 17142762 (Version 1)
Quarter: 2019Q4

REPORT INFORMATION
  Report Type: Spontaneous
  Country: BG (occurrence: BG)
  Receive Date: 20191211
  Receipt Date: 20191211
  Transmission Date: 20200122
  Serious: Yes (Hospitalization)
  Sender: FDA-Public Use
  Company Number: BG-BAUSCH-BL-2019-063550

PATIENT
  Age: 29 Year
  Sex: Female

DRUGS (3)
  1. PREDNISOLONE. [Suspect]
     Active Substance: PREDNISOLONE
     Indication: ACUTE MYELOID LEUKAEMIA
     Route: 048
     Dates: start: 2018
  2. PREDNISOLONE. [Suspect]
     Active Substance: PREDNISOLONE
     Route: 048
     Dates: start: 2018, end: 2018
  3. PREDNISOLONE. [Suspect]
     Active Substance: PREDNISOLONE
     Dosage: EACH WEEK THE DOSE WAS REDUCED BY 10 MG UNTIL 50MG DAILY
     Route: 048
     Dates: start: 2018

REACTIONS (2)
  - Mania [Recovered/Resolved]
  - Paranoia [Recovered/Resolved]

NARRATIVE: CASE EVENT DATE: 2018
